FAERS Safety Report 8676625 (Version 3)
Quarter: 2013Q4

REPORT INFORMATION
  Report Type: Spontaneous
  Country: US (occurrence: US)
  Receive Date: 20120723
  Receipt Date: 20131101
  Transmission Date: 20140711
  Serious: Yes (Life-Threatening, Disabling, Other)
  Sender: FDA-Public Use
  Company Number: US-009507513-1206USA03280

PATIENT
  Age: 65 Year
  Sex: Male
  Weight: 117.93 kg

DRUGS (14)
  1. VYTORIN [Suspect]
     Indication: BLOOD CHOLESTEROL
     Dosage: 1 DF, QD
     Route: 048
     Dates: start: 20100324, end: 20120122
  2. K-DUR [Concomitant]
  3. ALAVERT [Concomitant]
  4. AVAPRO [Concomitant]
  5. ASPIRIN [Concomitant]
  6. PEPCID [Concomitant]
     Route: 048
  7. OMEGA-3 MARINE TRIGLYCERIDES [Concomitant]
  8. CARDURA [Concomitant]
  9. TRILIPIX [Concomitant]
  10. LEXAPRO [Concomitant]
  11. VITAMINS (UNSPECIFIED) [Concomitant]
  12. DILTIAZEM HYDROCHLORIDE [Concomitant]
  13. FUROSEMIDE [Concomitant]
  14. AVAPRO [Concomitant]

REACTIONS (1)
  - Dyspnoea [Unknown]
